FAERS Safety Report 4714271-5 (Version None)
Quarter: 2005Q3

REPORT INFORMATION
  Report Type: 
  Country: None (occurrence: None)
  Receive Date: 20050714
  Receipt Date: 20050627
  Transmission Date: 20060218
  Serious: Yes (Other)
  Sender: FDA-Public Use
  Company Number: JP-JNJFOC-20050700458

PATIENT
  Age: 75 Year
  Sex: Male

DRUGS (8)
  1. ITRIZOLE [Suspect]
     Indication: ONYCHOMYCOSIS
     Route: 049
     Dates: start: 20050624, end: 20050626
  2. NIFEDIPINE [Interacting]
     Indication: HYPERTENSION
     Route: 049
  3. WARFARIN POTASSIUM [Concomitant]
     Route: 065
  4. THEOPHYLLINE [Concomitant]
     Route: 065
  5. ASPIRIN [Concomitant]
     Route: 049
  6. CIPRALAN [Concomitant]
     Route: 049
  7. METOPROLOL TARTRATE [Concomitant]
     Route: 049
  8. FAMOTIDINE [Concomitant]
     Route: 049

REACTIONS (2)
  - BLOOD PRESSURE DECREASED [None]
  - DRUG INTERACTION [None]
